FAERS Safety Report 15163922 (Version 3)
Quarter: 2018Q4

REPORT INFORMATION
  Report Type: Spontaneous
  Country: US (occurrence: US)
  Receive Date: 20180719
  Receipt Date: 20181009
  Transmission Date: 20190204
  Serious: Yes (Hospitalization, Other)
  Sender: FDA-Public Use
  Company Number: US-009507513-1807USA006292

PATIENT
  Sex: Male

DRUGS (4)
  1. XGEVA [Concomitant]
     Active Substance: DENOSUMAB
  2. MORPHINE IR [Concomitant]
     Active Substance: MORPHINE
     Indication: BREAKTHROUGH PAIN
  3. MORPHINE [Concomitant]
     Active Substance: MORPHINE
  4. KEYTRUDA [Suspect]
     Active Substance: PEMBROLIZUMAB
     Indication: LUNG CARCINOMA CELL TYPE UNSPECIFIED STAGE IV
     Dosage: UNK UNK, Q3W
     Route: 042
     Dates: start: 20170127, end: 20180615

REACTIONS (12)
  - Hypophagia [Unknown]
  - Fall [Unknown]
  - Stress [Unknown]
  - Diarrhoea [Unknown]
  - Malignant neoplasm progression [Unknown]
  - Polyuria [Recovered/Resolved]
  - Restlessness [Unknown]
  - Myalgia [Unknown]
  - Rash pruritic [Unknown]
  - Vomiting [Unknown]
  - Adverse event [Unknown]
  - Productive cough [Unknown]

NARRATIVE: CASE EVENT DATE: 2017
